FAERS Safety Report 4305800-4 (Version None)
Quarter: 2004Q1

REPORT INFORMATION
  Report Type: 
  Country: None (occurrence: None)
  Receive Date: 20040225
  Receipt Date: 20040213
  Transmission Date: 20041129
  Serious: Yes (Hospitalization)
  Sender: FDA-Public Use
  Company Number: US-JNJFOC-20040203675

PATIENT
  Age: 37 Year
  Sex: Male

DRUGS (11)
  1. DURAGESIC [Suspect]
     Indication: PAIN
     Dosage: 500 UG/HR, 1 IN 72 HOUR, TRANSDERMAL
     Route: 062
     Dates: end: 20040129
  2. DURAGESIC [Suspect]
     Indication: PAIN
     Dosage: 500 UG/HR, 1 IN 72 HOUR, TRANSDERMAL
     Route: 062
     Dates: start: 20040201
  3. FENTANYL [Suspect]
     Indication: PAIN
     Dosage: 150 UG/HR, SUBCUTANEOUS
     Route: 058
     Dates: end: 20040129
  4. NEXIUM [Concomitant]
  5. EFFEXOR [Concomitant]
  6. KLONOPIN [Concomitant]
  7. NEURONTIN [Concomitant]
  8. AMBIEN [Concomitant]
  9. SENNA (SENNA) [Concomitant]
  10. MAGNESIUM OXIDE (MAGNESIUM OXIDE) [Concomitant]
  11. WELLBUTRIN [Concomitant]

REACTIONS (14)
  - ABDOMINAL PAIN [None]
  - ALANINE AMINOTRANSFERASE INCREASED [None]
  - ASPARTATE AMINOTRANSFERASE INCREASED [None]
  - ASTHENIA [None]
  - BLOOD ALKALINE PHOSPHATASE INCREASED [None]
  - CHILLS [None]
  - DRUG WITHDRAWAL SYNDROME [None]
  - FACE OEDEMA [None]
  - GAZE PALSY [None]
  - HYPERHIDROSIS [None]
  - NAUSEA [None]
  - NECK MASS [None]
  - TREATMENT NONCOMPLIANCE [None]
  - VOMITING [None]
